FAERS Safety Report 4474536-1 (Version None)
Quarter: 2004Q4

REPORT INFORMATION
  Report Type: 
  Country: None (occurrence: None)
  Receive Date: 20041008
  Receipt Date: 20040929
  Transmission Date: 20050328
  Serious: Yes (Other)
  Sender: FDA-Public Use
  Company Number: HQWYE459430SEP04

PATIENT
  Age: 13 Year
  Sex: Male
  Weight: 49.94 kg

DRUGS (4)
  1. EFFEXOR XR [Suspect]
     Indication: AGGRESSION
     Dosage: 75 MG 1 X PER 1 DAY, ORAL
     Route: 048
     Dates: start: 20040501
  2. EFFEXOR XR [Suspect]
     Indication: DEPRESSION
     Dosage: 75 MG 1 X PER 1 DAY, ORAL
     Route: 048
     Dates: start: 20040501
  3. REMERON [Suspect]
     Indication: AGGRESSION
     Dosage: 25-75 MG DAILY
     Dates: start: 20040501
  4. REMERON [Suspect]
     Indication: DEPRESSION
     Dosage: 25-75 MG DAILY
     Dates: start: 20040501

REACTIONS (10)
  - ABNORMAL BEHAVIOUR [None]
  - AGITATION [None]
  - ANGER [None]
  - CONFABULATION [None]
  - CONFUSIONAL STATE [None]
  - CONVERSION DISORDER [None]
  - DRUG ABUSER [None]
  - HOSTILITY [None]
  - MYDRIASIS [None]
  - SUICIDAL IDEATION [None]
